FAERS Safety Report 7751131-X (Version None)
Quarter: 2011Q3

REPORT INFORMATION
  Report Type: 
  Country: None (occurrence: None)
  Receive Date: 20110914
  Receipt Date: 20110905
  Transmission Date: 20111222
  Serious: Yes (Death, Hospitalization, Other)
  Sender: FDA-Public Use
  Company Number: FR-BRISTOL-MYERS SQUIBB COMPANY-16033649

PATIENT
  Age: 62 Year
  Sex: Male

DRUGS (17)
  1. DOXORUBICIN HCL [Suspect]
  2. METHOTREXATE [Suspect]
  3. ZOFRAN [Concomitant]
  4. OMEPRAZOLE [Concomitant]
  5. MABTHERA [Suspect]
  6. SOLU-MEDROL [Concomitant]
  7. VINCRISTINE [Suspect]
  8. PRIMPERAN TAB [Concomitant]
  9. CORTANCYL [Concomitant]
  10. MORPHINE SULFATE [Suspect]
     Indication: PAIN
     Route: 048
     Dates: start: 20110509, end: 20110512
  11. CYCLOPHOSPHAMIDE [Suspect]
  12. SPIRIVA [Concomitant]
  13. SYMBICORT [Concomitant]
  14. ALLOPURINOL [Concomitant]
  15. CHLORPROMAZINE HCL [Concomitant]
  16. DUPHALAC [Concomitant]
  17. DEXRAZOXANE HYDROCHLORIDE [Suspect]

REACTIONS (8)
  - TUMOUR LYSIS SYNDROME [None]
  - RESPIRATORY DEPRESSION [None]
  - DRY MOUTH [None]
  - MULTI-ORGAN FAILURE [None]
  - NAUSEA [None]
  - RENAL FAILURE ACUTE [None]
  - CONSTIPATION [None]
  - LUNG DISORDER [None]
